FAERS Safety Report 22297768 (Version 2)
Quarter: 2023Q2

REPORT INFORMATION
  Report Type: Spontaneous
  Country: ES (occurrence: ES)
  Receive Date: 20230509
  Receipt Date: 20230526
  Transmission Date: 20230721
  Serious: Yes (Other)
  Sender: FDA-Public Use
  Company Number: ES-MLMSERVICE-20230420-4238007-1

PATIENT
  Age: 28 Year
  Sex: Female

DRUGS (1)
  1. AMOXICILLIN\CLAVULANIC ACID [Suspect]
     Active Substance: AMOXICILLIN\CLAVULANIC ACID
     Indication: Urinary tract infection
     Dosage: 1 DOSAGE FORM, 3 TIMES A DAY(875/125 MG TABLETS EVERY 8 HOURS FOR 10 DAYS ORALLY)
     Route: 065
     Dates: start: 2016

REACTIONS (1)
  - Cold urticaria [Recovered/Resolved]

NARRATIVE: CASE EVENT DATE: 20160101
